FAERS Safety Report 8157553 (Version 5)
Quarter: 2013Q2

REPORT INFORMATION
  Report Type: Spontaneous
  Country: US (occurrence: US)
  Receive Date: 20110927
  Receipt Date: 20130405
  Transmission Date: 20140414
  Serious: Yes (Death, Other)
  Sender: FDA-Public Use
  Company Number: US-ASTRAZENECA-2011SE12689

PATIENT
  Age: 59 Year
  Sex: Male
  Weight: 129 kg

DRUGS (16)
  1. SEROQUEL [Suspect]
     Indication: AFFECTIVE DISORDER
     Route: 048
     Dates: start: 20030709
  2. SEROQUEL [Suspect]
     Indication: INSOMNIA
     Route: 048
     Dates: start: 20030709
  3. SEROQUEL [Suspect]
     Indication: AFFECTIVE DISORDER
     Route: 048
     Dates: start: 20041026
  4. SEROQUEL [Suspect]
     Indication: INSOMNIA
     Route: 048
     Dates: start: 20041026
  5. HYDROXYZINE HCL [Concomitant]
     Indication: ANXIETY
     Route: 048
     Dates: start: 200307
  6. IBUPROFEN [Concomitant]
     Route: 048
     Dates: start: 200307
  7. LITHIUM CARBONATE [Concomitant]
     Route: 048
     Dates: start: 200307
  8. RABEPRAZOLE [Concomitant]
     Indication: GASTRIC DISORDER
     Dosage: TAKE ONE TABLET BY MOUTH EVERY DAY 30 MINUTES BEFORE ONE MEAL
     Route: 048
     Dates: start: 200307
  9. VENLAFAXINE HYDROCHLORIDE [Concomitant]
     Route: 048
     Dates: start: 200307
  10. DIVALPROEX [Concomitant]
     Indication: MOOD ALTERED
     Route: 048
     Dates: start: 20041026
  11. GEMFIBROZIL [Concomitant]
     Indication: BLOOD TRIGLYCERIDES ABNORMAL
     Route: 048
     Dates: start: 20041026
  12. HYDROCHLOROTHIAZIDE [Concomitant]
     Indication: FLUID OVERLOAD
     Route: 048
     Dates: start: 20041026
  13. HYDROCHLOROTHIAZIDE [Concomitant]
     Indication: BLOOD PRESSURE
     Route: 048
     Dates: start: 20041026
  14. NAPROXEN [Concomitant]
     Indication: ARTHRITIS
     Route: 048
     Dates: start: 20041026
  15. NAPROXEN [Concomitant]
     Indication: PAIN
     Route: 048
     Dates: start: 20041026
  16. OMEPRAZOLE [Concomitant]
     Indication: GASTRIC DISORDER
     Route: 048
     Dates: start: 20041026

REACTIONS (5)
  - Septic shock [Fatal]
  - Intestinal perforation [Unknown]
  - Pancreatitis [Unknown]
  - Diabetic coma [Unknown]
  - Type 2 diabetes mellitus [Unknown]
